FAERS Safety Report 7711910-1 (Version None)
Quarter: 2011Q3

REPORT INFORMATION
  Report Type: 
  Country: None (occurrence: None)
  Receive Date: 20110826
  Receipt Date: 20110817
  Transmission Date: 20111222
  Serious: Yes (Hospitalization, Other)
  Sender: FDA-Public Use
  Company Number: US-BAYER-2011-023468

PATIENT
  Age: 23 Year
  Sex: Female
  Weight: 63 kg

DRUGS (3)
  1. DROSPIRENONE AND ETHINYL ESTRADIOL [Suspect]
     Indication: CONTRACEPTION
     Dosage: UNK
     Dates: start: 20081201, end: 20091101
  2. YAZ [Suspect]
     Indication: CONTRACEPTION
     Dosage: UNK
     Dates: start: 20080101, end: 20081101
  3. YASMIN [Suspect]
     Indication: CONTRACEPTION
     Dosage: UNK
     Dates: start: 20050801, end: 20070901

REACTIONS (11)
  - DYSPEPSIA [None]
  - GALLBLADDER DISORDER [None]
  - INJURY [None]
  - SCAR [None]
  - CONSTIPATION [None]
  - DIARRHOEA [None]
  - ANXIETY [None]
  - DEPRESSION [None]
  - BILIARY DYSKINESIA [None]
  - ABDOMINAL DISTENSION [None]
  - FLATULENCE [None]
